FAERS Safety Report 6917509-9 (Version None)
Quarter: 2010Q3

REPORT INFORMATION
  Report Type: 
  Country: None (occurrence: None)
  Receive Date: 20100805
  Receipt Date: 20100729
  Transmission Date: 20110219
  Serious: Yes (Death)
  Sender: FDA-Public Use
  Company Number: 2010JP003893

PATIENT
  Age: 66 Year
  Sex: Male
  Weight: 58.8 kg

DRUGS (6)
  1. PROGRAF [Suspect]
     Indication: COLITIS ULCERATIVE
     Dosage: 1 MG, BID, ORAL, 2.5 MG, BID, ORAL, 5 MG, BID, ORAL, 3.5 MG, BID, ORAL
     Route: 048
     Dates: start: 20100601, end: 20100602
  2. PROGRAF [Suspect]
     Indication: COLITIS ULCERATIVE
     Dosage: 1 MG, BID, ORAL, 2.5 MG, BID, ORAL, 5 MG, BID, ORAL, 3.5 MG, BID, ORAL
     Route: 048
     Dates: start: 20100603, end: 20100606
  3. PROGRAF [Suspect]
     Indication: COLITIS ULCERATIVE
     Dosage: 1 MG, BID, ORAL, 2.5 MG, BID, ORAL, 5 MG, BID, ORAL, 3.5 MG, BID, ORAL
     Route: 048
     Dates: start: 20100607, end: 20100613
  4. PROGRAF [Suspect]
     Indication: COLITIS ULCERATIVE
     Dosage: 1 MG, BID, ORAL, 2.5 MG, BID, ORAL, 5 MG, BID, ORAL, 3.5 MG, BID, ORAL
     Route: 048
     Dates: start: 20100614, end: 20100628
  5. PREDNISOLONE TAB [Suspect]
     Dosage: 10 MG, BID, ORAL
     Route: 048
  6. PREDNISOLONE [Concomitant]

REACTIONS (2)
  - PNEUMOCYSTIS JIROVECI PNEUMONIA [None]
  - PNEUMOTHORAX [None]
